FAERS Safety Report 13058862 (Version 1)
Quarter: 2016Q4

REPORT INFORMATION
  Report Type: Spontaneous
  Country: US (occurrence: US)
  Receive Date: 20161223
  Receipt Date: 20161223
  Transmission Date: 20170207
  Serious: Yes (Hospitalization)
  Sender: FDA-Public Use
  Company Number: US-SA-2016SA228336

PATIENT
  Age: 64 Year
  Sex: Male

DRUGS (3)
  1. INSULIN ASPART [Suspect]
     Active Substance: INSULIN ASPART
     Indication: TYPE 2 DIABETES MELLITUS
     Dosage: 15 U SQ AC DOSE:15 UNIT(S)
     Route: 058
  2. TACROLIMUS. [Concomitant]
     Active Substance: TACROLIMUS
     Indication: LIVER TRANSPLANT
  3. INSULIN GLARGINE [Suspect]
     Active Substance: INSULIN GLARGINE
     Indication: TYPE 2 DIABETES MELLITUS
     Dosage: 50 U SQ DOSE:50 UNIT(S)
     Route: 058

REACTIONS (6)
  - Wrong technique in product usage process [Unknown]
  - Hyperglycaemia [Recovering/Resolving]
  - Off label use [Unknown]
  - Glycosylated haemoglobin increased [Recovering/Resolving]
  - Amyloidosis [Unknown]
  - Skin mass [Unknown]
